FAERS Safety Report 17475583 (Version 1)
Quarter: 2020Q1

REPORT INFORMATION
  Report Type: Report from Study
  Country: CA (occurrence: CA)
  Receive Date: 20200228
  Receipt Date: 20200228
  Transmission Date: 20200409
  Serious: Yes (Other)
  Sender: FDA-Public Use
  Company Number: CA-JNJFOC-20190817109

PATIENT
  Age: 69 Year
  Sex: Female
  Weight: 65.32 kg

DRUGS (2)
  1. MACROBID [Suspect]
     Active Substance: NITROFURANTOIN\NITROFURANTOIN MONOHYDRATE
     Indication: BLOOD URINE PRESENT
  2. STELARA [Suspect]
     Active Substance: USTEKINUMAB
     Indication: CROHN^S DISEASE
     Dosage: 23RD DOSE
     Route: 058
     Dates: start: 20160624

REACTIONS (8)
  - Gastrointestinal inflammation [Unknown]
  - Gingivitis [Unknown]
  - Skin ulcer [Recovering/Resolving]
  - Urticaria [Recovering/Resolving]
  - Blood urine present [Unknown]
  - Melaena [Unknown]
  - Rash [Recovering/Resolving]
  - Abdominal pain [Unknown]

NARRATIVE: CASE EVENT DATE: 201908
